FAERS Safety Report 20216856 (Version 1)
Quarter: 2021Q4

REPORT INFORMATION
  Report Type: Spontaneous
  Country: GB (occurrence: GB)
  Receive Date: 20211222
  Receipt Date: 20211222
  Transmission Date: 20220303
  Serious: Yes (Other)
  Sender: FDA-Public Use
  Company Number: None

PATIENT
  Age: 54 Year
  Sex: Female

DRUGS (4)
  1. OLANZAPINE [Suspect]
     Active Substance: OLANZAPINE
     Indication: Ill-defined disorder
     Dosage: 10 MILLIGRAM
     Route: 048
     Dates: start: 202112
  2. OLANZAPINE [Suspect]
     Active Substance: OLANZAPINE
     Indication: Sleep deficit
  3. OLANZAPINE [Suspect]
     Active Substance: OLANZAPINE
     Indication: Psychotic disorder
  4. ZOPICLONE [Concomitant]
     Active Substance: ZOPICLONE
     Indication: Ill-defined disorder
     Dosage: UNK

REACTIONS (5)
  - Flushing [Unknown]
  - Dyspnoea [Unknown]
  - Dysphagia [Unknown]
  - Heart rate increased [Unknown]
  - Chest pain [Unknown]

NARRATIVE: CASE EVENT DATE: 20211201
